FAERS Safety Report 9772117 (Version 2)
Quarter: 2013Q4

REPORT INFORMATION
  Report Type: Spontaneous
  Country: FR (occurrence: FR)
  Receive Date: 20131219
  Receipt Date: 20131220
  Transmission Date: 20140711
  Serious: Yes (Other)
  Sender: FDA-Public Use
  Company Number: FR-BEH-2013039596

PATIENT
  Age: 18 Month
  Sex: Female

DRUGS (2)
  1. INTRAVENOUS IMMUNOGLOBULIN [Suspect]
     Indication: KAWASAKI^S DISEASE
     Dosage: 2G/KG
     Route: 042
  2. ASPIRIN [Concomitant]

REACTIONS (1)
  - Cerebrovascular accident [Recovering/Resolving]
